FAERS Safety Report 5529206-5 (Version None)
Quarter: 2007Q4

REPORT INFORMATION
  Report Type: 
  Country: None (occurrence: None)
  Receive Date: 20071129
  Receipt Date: 20070906
  Transmission Date: 20080405
  Serious: No
  Sender: FDA-Public Use
  Company Number: A0653688A

PATIENT
  Age: 60 Year
  Sex: Male

DRUGS (5)
  1. WELLBUTRIN SR [Suspect]
     Indication: BIPOLAR II DISORDER
     Dosage: 200MG TWICE PER DAY
     Route: 048
     Dates: start: 19970101, end: 20070101
  2. ZYPREXA [Suspect]
     Indication: DRUG USE FOR UNKNOWN INDICATION
     Route: 065
     Dates: start: 20040101
  3. DEPAKOTE [Concomitant]
  4. DIPHENHYDRAMINE HCL [Concomitant]
  5. ADVIL LIQUI-GELS [Concomitant]

REACTIONS (4)
  - BALANCE DISORDER [None]
  - COORDINATION ABNORMAL [None]
  - FALL [None]
  - TREMOR [None]
